FAERS Safety Report 7241353-9 (Version None)
Quarter: 2011Q1

REPORT INFORMATION
  Report Type: 
  Country: None (occurrence: None)
  Receive Date: 20110120
  Receipt Date: 20110120
  Transmission Date: 20110831
  Serious: Yes (Death)
  Sender: FDA-Public Use
  Company Number: None

PATIENT
  Sex: Female

DRUGS (2)
  1. CLOZAPINE [Suspect]
     Indication: BIPOLAR DISORDER
     Dosage: 200MG Q 8 PM PO
     Route: 048
  2. CLOZAPINE [Suspect]
     Indication: BIPOLAR DISORDER
     Dosage: 150MG Q 7 AM PO
     Route: 048

REACTIONS (7)
  - SEPSIS [None]
  - SMALL INTESTINAL OBSTRUCTION [None]
  - PROCTOCOLITIS [None]
  - ISCHAEMIA [None]
  - CONSTIPATION [None]
  - SARCOIDOSIS [None]
  - HYPOTHYROIDISM [None]
